FAERS Safety Report 7465766-5 (Version None)
Quarter: 2011Q2

REPORT INFORMATION
  Report Type: 
  Country: None (occurrence: None)
  Receive Date: 20110509
  Receipt Date: 20110502
  Transmission Date: 20111010
  Serious: Yes (Life-Threatening, Hospitalization, Other)
  Sender: FDA-Public Use
  Company Number: DE-ABBOTT-11P-062-0703265-00

PATIENT
  Age: 32 Year
  Sex: Male
  Weight: 66 kg

DRUGS (3)
  1. COMBIVIR [Suspect]
     Indication: PROPHYLAXIS AGAINST HIV INFECTION
     Dosage: 2 - 150/300MG TABS DAILY
     Route: 048
     Dates: start: 20100822, end: 20100922
  2. KALETRA [Suspect]
     Indication: PROPHYLAXIS AGAINST HIV INFECTION
     Route: 048
     Dates: start: 20100822, end: 20100922
  3. VIGANTOLETTEN [Suspect]
     Indication: PRODUCT USED FOR UNKNOWN INDICATION
     Route: 048
     Dates: start: 20101001, end: 20101226

REACTIONS (4)
  - NASOPHARYNGITIS [None]
  - MALAISE [None]
  - RENAL FAILURE ACUTE [None]
  - FLANK PAIN [None]
